FAERS Safety Report 13226412 (Version 1)
Quarter: 2017Q1

REPORT INFORMATION
  Report Type: Other
  Country: US (occurrence: US)
  Receive Date: 20170213
  Receipt Date: 20170213
  Transmission Date: 20170428
  Serious: No
  Sender: FDA-Public Use
  Company Number: US-ACORDA-ACO_129077_2016

PATIENT
  Sex: Female

DRUGS (1)
  1. AMPYRA [Suspect]
     Active Substance: DALFAMPRIDINE
     Indication: PRODUCT USED FOR UNKNOWN INDICATION
     Dosage: UNK
     Route: 065

REACTIONS (7)
  - Cystitis interstitial [Unknown]
  - Rash [Unknown]
  - Pain [Unknown]
  - Condition aggravated [Unknown]
  - Temperature intolerance [Unknown]
  - Asthenia [Unknown]
  - Musculoskeletal stiffness [Unknown]
